FAERS Safety Report 5519750-9 (Version None)
Quarter: 2007Q4

REPORT INFORMATION
  Report Type: 
  Country: None (occurrence: None)
  Receive Date: 20071116
  Receipt Date: 20070803
  Transmission Date: 20080405
  Serious: No
  Sender: FDA-Public Use
  Company Number: A0668120A

PATIENT
  Age: 73 Year
  Sex: Male

DRUGS (9)
  1. COREG CR [Suspect]
     Indication: LEFT VENTRICULAR DYSFUNCTION
     Dosage: 10MG PER DAY
     Route: 048
     Dates: start: 20070719
  2. ACTOS [Concomitant]
  3. GLYBURIDE AND METFORMIN HCL [Concomitant]
  4. LISINOPRIL [Concomitant]
  5. HYDROCHLOROTHIAZIDE [Concomitant]
  6. DIGOXIN [Concomitant]
  7. VYTORIN [Concomitant]
  8. ASPIRIN [Concomitant]
  9. ISOSORBIDE DINITRATE [Concomitant]

REACTIONS (1)
  - ABDOMINAL PAIN [None]
